FAERS Safety Report 7224788-X (Version None)
Quarter: 2011Q1

REPORT INFORMATION
  Report Type: 
  Country: None (occurrence: None)
  Receive Date: 20110113
  Receipt Date: 20101231
  Transmission Date: 20110831
  Serious: Yes (Death)
  Sender: FDA-Public Use
  Company Number: US-CELGENEUS-163-21880-10101630

PATIENT
  Age: 73 Year
  Sex: Male

DRUGS (9)
  1. DEXAMETHASONE [Concomitant]
     Route: 065
  2. FUROSEMIDE [Concomitant]
     Indication: SWELLING
     Route: 065
  3. OXYCODONE [Concomitant]
     Route: 065
  4. GLIPIZIDE [Concomitant]
     Route: 065
  5. ASPIRIN [Concomitant]
     Route: 065
  6. GABAPENTIN [Concomitant]
     Route: 065
  7. K-TAB [Concomitant]
     Route: 065
  8. ATENOLOL [Concomitant]
     Route: 065
  9. REVLIMID [Suspect]
     Indication: MULTIPLE MYELOMA
     Route: 048
     Dates: start: 20090501, end: 20100901

REACTIONS (1)
  - COMPLETED SUICIDE [None]
